FAERS Safety Report 23486266 (Version 9)
Quarter: 2024Q3

REPORT INFORMATION
  Report Type: Report from Study
  Country: CA (occurrence: CA)
  Receive Date: 20240206
  Receipt Date: 20240905
  Transmission Date: 20241017
  Serious: Yes (Hospitalization, Other)
  Sender: SANDOZ
  Company Number: CA-002147023-NVSC2022CA277930

PATIENT
  Age: 86 Year
  Sex: Female

DRUGS (11)
  1. ERELZI [Suspect]
     Active Substance: ETANERCEPT-SZZS
     Dosage: 50 MG
     Route: 058
     Dates: start: 20221226
  2. ERELZI [Suspect]
     Active Substance: ETANERCEPT-SZZS
     Dosage: 50 MG, QW
     Route: 058
     Dates: start: 20230212
  3. ERELZI [Suspect]
     Active Substance: ETANERCEPT-SZZS
     Dosage: 50 MG
     Route: 058
     Dates: start: 20221211
  4. ERELZI [Suspect]
     Active Substance: ETANERCEPT-SZZS
     Indication: Rheumatoid arthritis
     Dosage: 50 MG
     Route: 058
     Dates: start: 20221127
  5. ERELZI [Suspect]
     Active Substance: ETANERCEPT-SZZS
     Dosage: 50 MG
     Route: 058
     Dates: start: 20230618
  6. ERELZI [Suspect]
     Active Substance: ETANERCEPT-SZZS
     Dosage: 50 MG
     Route: 058
  7. ERELZI [Suspect]
     Active Substance: ETANERCEPT-SZZS
     Dosage: 50 MG, QW
     Route: 058
     Dates: start: 20230212
  8. ERELZI [Suspect]
     Active Substance: ETANERCEPT-SZZS
     Dosage: 50 MG, QW
     Route: 058
     Dates: start: 20240602
  9. ERELZI [Suspect]
     Active Substance: ETANERCEPT-SZZS
     Dosage: 50 MG
     Route: 058
     Dates: start: 20230115
  10. ERELZI [Suspect]
     Active Substance: ETANERCEPT-SZZS
     Dosage: 50 MG
     Route: 058
     Dates: start: 20230611
  11. TYLENOL ARTHRITIS PAIN [Concomitant]
     Active Substance: ACETAMINOPHEN
     Indication: Product used for unknown indication
     Route: 065

REACTIONS (27)
  - Abdominal pain [Unknown]
  - Appendicitis [Unknown]
  - Delirium [Unknown]
  - Infection [Unknown]
  - Pain of skin [Unknown]
  - Sensitive skin [Unknown]
  - Fatigue [Unknown]
  - Osteoarthritis [Unknown]
  - Peripheral swelling [Unknown]
  - Joint swelling [Unknown]
  - Gait disturbance [Unknown]
  - Pain in extremity [Unknown]
  - Dyskinesia [Unknown]
  - Fine motor skill dysfunction [Unknown]
  - Arthritis [Unknown]
  - Contusion [Unknown]
  - Swelling face [Unknown]
  - Skin discolouration [Unknown]
  - Abdominal pain upper [Unknown]
  - Injection site pain [Unknown]
  - Injection site bruising [Unknown]
  - Haematoma [Unknown]
  - Procedural pain [Unknown]
  - Blood pressure increased [Unknown]
  - Product dose omission issue [Unknown]
  - Product availability issue [Unknown]
  - Inappropriate schedule of product administration [Unknown]

NARRATIVE: CASE EVENT DATE: 20240211
